FAERS Safety Report 9597991 (Version 1)
Quarter: 2013Q4

REPORT INFORMATION
  Report Type: Spontaneous
  Country: US (occurrence: US)
  Receive Date: 20131004
  Receipt Date: 20131004
  Transmission Date: 20140711
  Serious: No
  Sender: FDA-Public Use
  Company Number: US-AMGEN-USASP2013022136

PATIENT
  Age: 30 Year
  Sex: Female
  Weight: 99.77 kg

DRUGS (11)
  1. ENBREL [Suspect]
     Indication: PRODUCT USED FOR UNKNOWN INDICATION
     Dosage: 50 MG, QWK
     Route: 058
     Dates: start: 201104, end: 201212
  2. WELLBUTRIN [Concomitant]
     Dosage: 75 MG, UNK
  3. EFFEXOR [Concomitant]
     Dosage: 75 MG, UNK
  4. TOLMETIN SODIUM [Concomitant]
     Dosage: 600 MG, UNK
  5. NEURONTIN [Concomitant]
     Dosage: 300 MG, UNK
  6. ZOFRAN                             /00955301/ [Concomitant]
     Dosage: 4 MG, UNK
  7. PRILOSEC                           /00661201/ [Concomitant]
     Dosage: 10 MG, UNK
  8. CLARITIN                           /00413701/ [Concomitant]
     Dosage: 10 MG, UNK
  9. MULTIVITAMINS, PLAIN [Concomitant]
     Dosage: UNK
  10. BIOTIN [Concomitant]
     Dosage: 2500 MUG, UNK
  11. VITAMIN E                          /00110501/ [Concomitant]
     Dosage: 100 UNIT, UNK

REACTIONS (1)
  - Therapeutic response decreased [Unknown]
